FAERS Safety Report 9768118 (Version 2)
Quarter: 2013Q4

REPORT INFORMATION
  Report Type: Spontaneous
  Country: JP (occurrence: JP)
  Receive Date: 20131217
  Receipt Date: 20131231
  Transmission Date: 20140711
  Serious: Yes (Death)
  Sender: FDA-Public Use
  Company Number: JP-BAXTER-2013BAX049556

PATIENT
  Age: 8 Decade
  Sex: Male
  Weight: 50 kg

DRUGS (4)
  1. FEIBA FOR INJECTION 1000 [Suspect]
     Indication: ACQUIRED HAEMOPHILIA
     Route: 042
     Dates: start: 20131122, end: 20131124
  2. FEIBA FOR INJECTION 1000 [Suspect]
     Route: 042
     Dates: start: 20131129, end: 20131204
  3. NOVOSEVEN [Concomitant]
     Indication: ACQUIRED HAEMOPHILIA
     Dosage: 8-12 TIMES A DAY
     Route: 042
     Dates: start: 20131125, end: 20131128
  4. HUMAN ANTIHEMOPHILIC FACTOR 13 [Concomitant]
     Indication: ACQUIRED HAEMOPHILIA
     Dosage: 8-12 TIMES A DAY
     Route: 042
     Dates: start: 20131125, end: 20131128

REACTIONS (1)
  - Multi-organ failure [Fatal]
